FAERS Safety Report 8216973 (Version 3)
Quarter: 2013Q1

REPORT INFORMATION
  Report Type: Spontaneous
  Country: US (occurrence: US)
  Receive Date: 20111101
  Receipt Date: 20130302
  Transmission Date: 20140127
  Serious: Yes (Other)
  Sender: FDA-Public Use
  Company Number: US-US-EMD SERONO, INC.-7091766

PATIENT
  Sex: Female

DRUGS (1)
  1. REBIF [Suspect]
     Indication: MULTIPLE SCLEROSIS
     Route: 058
     Dates: start: 20080822, end: 201210

REACTIONS (5)
  - Myocardial infarction [Unknown]
  - Cerebrovascular accident [Recovering/Resolving]
  - Burning sensation [Unknown]
  - Skin discolouration [Unknown]
  - Paraesthesia [Unknown]
